FAERS Safety Report 5674691-1 (Version None)
Quarter: 2008Q1

REPORT INFORMATION
  Report Type: 
  Country: None (occurrence: None)
  Receive Date: 20080320
  Receipt Date: 20080317
  Transmission Date: 20080703
  Serious: Yes (Death)
  Sender: FDA-Public Use
  Company Number: B0511138A

PATIENT
  Age: 74 Year
  Sex: Female

DRUGS (9)
  1. ARIXTRA [Suspect]
     Indication: THROMBOSIS PROPHYLAXIS
     Dosage: 2.5MG PER DAY
     Route: 058
     Dates: start: 20080214, end: 20080223
  2. PANSPORIN [Concomitant]
  3. FLOMOX [Concomitant]
     Route: 048
     Dates: start: 20080216
  4. FRAGMIN [Concomitant]
     Dates: start: 20080213
  5. URSO 250 [Concomitant]
     Route: 048
  6. RANITAC [Concomitant]
     Route: 048
  7. MICARDIS [Concomitant]
     Route: 048
  8. HYPEN [Concomitant]
     Route: 048
  9. ISALON [Concomitant]
     Route: 048

REACTIONS (2)
  - CEREBRAL HAEMORRHAGE [None]
  - PLATELET COUNT DECREASED [None]
